FAERS Safety Report 23336296 (Version 1)
Quarter: 2023Q4

REPORT INFORMATION
  Report Type: Report from Study
  Country: US (occurrence: US)
  Receive Date: 20231225
  Receipt Date: 20231225
  Transmission Date: 20240109
  Serious: Yes (Other)
  Sender: FDA-Public Use
  Company Number: US-JAZZ PHARMACEUTICALS-2022-US-034528

PATIENT
  Sex: Male

DRUGS (10)
  1. EPIDIOLEX [Suspect]
     Active Substance: CANNABIDIOL
     Indication: Lennox-Gastaut syndrome
     Dosage: 6 MILLILITER
     Route: 048
     Dates: start: 201109
  2. EPIDIOLEX [Suspect]
     Active Substance: CANNABIDIOL
     Indication: Idiopathic generalised epilepsy
     Dosage: 3 MILLILITER
     Route: 048
     Dates: start: 202210
  3. EPIDIOLEX [Suspect]
     Active Substance: CANNABIDIOL
     Dosage: 3 MILLILITER, BID
     Route: 048
     Dates: start: 202210
  4. EPIDIOLEX [Suspect]
     Active Substance: CANNABIDIOL
     Dosage: 2 MILLILITER
  5. EPIDIOLEX [Suspect]
     Active Substance: CANNABIDIOL
     Dosage: 300 MILLIGRAM
     Route: 048
     Dates: start: 202210
  6. EPIDIOLEX [Suspect]
     Active Substance: CANNABIDIOL
     Dosage: 1.5 ML EVERY MORNING AND 2.5 ML IN EVENING, BID
     Route: 048
     Dates: start: 202209
  7. LEVETIRACETAM [Concomitant]
     Active Substance: LEVETIRACETAM
  8. ZONISAMIDE [Concomitant]
     Active Substance: ZONISAMIDE
  9. FLUDROCORTISONE ACETATE [Concomitant]
     Active Substance: FLUDROCORTISONE ACETATE
  10. CLOBAZAM [Concomitant]
     Active Substance: CLOBAZAM

REACTIONS (8)
  - Faecaloma [Unknown]
  - Incontinence [Unknown]
  - Change of bowel habit [Unknown]
  - Insomnia [Unknown]
  - Decreased appetite [Recovering/Resolving]
  - Weight decreased [Unknown]
  - Depressed mood [Unknown]
  - Somnolence [Unknown]
